FAERS Safety Report 20207327 (Version 1)
Quarter: 2021Q4

REPORT INFORMATION
  Report Type: Spontaneous
  Country: US (occurrence: US)
  Receive Date: 20211220
  Receipt Date: 20211220
  Transmission Date: 20220303
  Serious: No
  Sender: FDA-Public Use
  Company Number: US-NOVEN PHARMACEUTICALS, INC.-2021US001387

PATIENT
  Sex: Female

DRUGS (3)
  1. MINIVELLE [Suspect]
     Active Substance: ESTRADIOL
     Indication: Artificial menopause
     Dosage: 0.1 MG, 2/WEEK
     Route: 062
     Dates: start: 2019
  2. PROGESTERONE [Concomitant]
     Active Substance: PROGESTERONE
     Indication: Product used for unknown indication
     Dosage: UNK
  3. NEXPLANON [Concomitant]
     Active Substance: ETONOGESTREL
     Indication: Artificial menopause
     Dosage: UNK

REACTIONS (10)
  - Nasopharyngitis [Not Recovered/Not Resolved]
  - Dry skin [Not Recovered/Not Resolved]
  - Application site pruritus [Not Recovered/Not Resolved]
  - Application site urticaria [Not Recovered/Not Resolved]
  - Application site irritation [Not Recovered/Not Resolved]
  - Application site rash [Not Recovered/Not Resolved]
  - Application site erythema [Not Recovered/Not Resolved]
  - Adhesive tape use [Not Recovered/Not Resolved]
  - Device breakage [Not Recovered/Not Resolved]
  - Device adhesion issue [Not Recovered/Not Resolved]

NARRATIVE: CASE EVENT DATE: 20210101
